FAERS Safety Report 11010510 (Version 2)
Quarter: 2015Q2

REPORT INFORMATION
  Report Type: Spontaneous
  Country: US (occurrence: US)
  Receive Date: 20150410
  Receipt Date: 20150527
  Transmission Date: 20150821
  Serious: Yes (Death, Life-Threatening, Hospitalization, Other)
  Sender: FDA-Public Use
  Company Number: US-009507513-1504USA003863

PATIENT
  Sex: Female
  Weight: 72.56 kg

DRUGS (2)
  1. JANUVIA [Suspect]
     Active Substance: SITAGLIPTIN PHOSPHATE
     Indication: TYPE 2 DIABETES MELLITUS
     Dosage: 100 MG, QD
     Route: 048
     Dates: start: 20110404, end: 20121003
  2. BYETTA [Suspect]
     Active Substance: EXENATIDE
     Indication: TYPE 2 DIABETES MELLITUS
     Dosage: 10 MICROGRAM, BID
     Route: 048
     Dates: start: 20070509, end: 20090922

REACTIONS (26)
  - Urinary tract infection [Unknown]
  - Iron deficiency [Unknown]
  - Dyspnoea exertional [Unknown]
  - Eczema [Unknown]
  - Headache [Unknown]
  - Pancreatic carcinoma metastatic [Unknown]
  - Death [Fatal]
  - Pulmonary mass [Unknown]
  - Hydroureter [Unknown]
  - Hydronephrosis [Unknown]
  - Anaemia [Unknown]
  - Constipation [Unknown]
  - Metastases to peritoneum [Unknown]
  - Cardiac murmur [Unknown]
  - Depression [Unknown]
  - Hysterectomy [Unknown]
  - Sleep apnoea syndrome [Unknown]
  - Cough [Unknown]
  - Osteoporosis [Unknown]
  - Narcolepsy [Unknown]
  - Ovarian cancer metastatic [Unknown]
  - Dysphagia [Unknown]
  - Hyperlipidaemia [Unknown]
  - Hypertension [Unknown]
  - Gastric cancer [Unknown]
  - Acute kidney injury [Unknown]

NARRATIVE: CASE EVENT DATE: 20111122
